FAERS Safety Report 9844939 (Version 1)
Quarter: 2014Q1

REPORT INFORMATION
  Report Type: Spontaneous
  Country: US (occurrence: None)
  Receive Date: 20140123
  Receipt Date: 20140123
  Transmission Date: 20141002
  Serious: Yes (Life-Threatening, Disabling)
  Sender: FDA-Public Use
  Company Number: None

PATIENT
  Age: 30 Year
  Sex: Male
  Weight: 63.5 kg

DRUGS (1)
  1. QUETIAPINE TABLETS 100 MG [Suspect]
     Indication: MAJOR DEPRESSION
     Dosage: 1 PILL  ONCE DAILY  TAKEN BY MOUTH
     Route: 048
     Dates: start: 20140107, end: 20140119

REACTIONS (11)
  - Angina pectoris [None]
  - Fatigue [None]
  - Pyrexia [None]
  - Visual impairment [None]
  - Heart rate irregular [None]
  - Irritability [None]
  - Abnormal dreams [None]
  - Vertigo [None]
  - Arthralgia [None]
  - Coordination abnormal [None]
  - Homicidal ideation [None]
